FAERS Safety Report 11283862 (Version 6)
Quarter: 2016Q2

REPORT INFORMATION
  Report Type: Report from Study
  Country: CN (occurrence: CN)
  Receive Date: 20150720
  Receipt Date: 20160419
  Transmission Date: 20160815
  Serious: Yes (Other)
  Sender: FDA-Public Use
  Company Number: CN-BAXALTA-2015BAX031341

PATIENT

DRUGS (4)
  1. ADVATE [Suspect]
     Active Substance: ANTIHEMOPHILIC FACTOR, HUMAN RECOMBINANT
     Indication: FACTOR VIII DEFICIENCY
     Dosage: 4-5 TIMES A WEEK
     Route: 065
  2. ADVATE [Suspect]
     Active Substance: ANTIHEMOPHILIC FACTOR, HUMAN RECOMBINANT
     Indication: PROPHYLAXIS
     Dosage: 2-3 TIMES A WEEK
     Route: 042
  3. ADVATE [Suspect]
     Active Substance: ANTIHEMOPHILIC FACTOR, HUMAN RECOMBINANT
     Dosage: 1000 IU, 3X A WEEK
     Route: 065
  4. ADVATE [Suspect]
     Active Substance: ANTIHEMOPHILIC FACTOR, HUMAN RECOMBINANT
     Dosage: 1000 IU, 2X A WEEK
     Route: 065
     Dates: end: 201511

REACTIONS (9)
  - Factor VIII inhibition [Recovered/Resolved]
  - Haemorrhage [Recovered/Resolved]
  - Muscle haemorrhage [Unknown]
  - Gingival bleeding [Recovered/Resolved]
  - Haemarthrosis [Unknown]
  - Gingival bleeding [Unknown]
  - Haemarthrosis [Recovered/Resolved]
  - Pharyngeal haemorrhage [Unknown]
  - Drug tolerance [Unknown]

NARRATIVE: CASE EVENT DATE: 2015
